FAERS Safety Report 25919246 (Version 6)
Quarter: 2025Q4

REPORT INFORMATION
  Report Type: Spontaneous
  Country: GB (occurrence: GB)
  Receive Date: 20251014
  Receipt Date: 20251210
  Transmission Date: 20260118
  Serious: No
  Sender: PFIZER
  Company Number: GB-PFIZER INC-202500199258

PATIENT
  Age: 45 Year
  Sex: Male
  Weight: 87 kg

DRUGS (7)
  1. GENOTROPIN [Suspect]
     Active Substance: SOMATROPIN
     Indication: Growth hormone deficiency
     Dosage: 0.2 MG, DAILY
     Route: 058
     Dates: start: 199706
  2. LEVOTHYROXINE [Concomitant]
     Active Substance: LEVOTHYROXINE
     Indication: Hypothyroidism
     Dosage: 100 MCG, DAILY
  3. NEBIDO [Concomitant]
     Active Substance: TESTOSTERONE UNDECANOATE
     Indication: Hypogonadism
     Dosage: 1500MG/4ML, EVERY 9 WEEKS
  4. LANSOPRAZOLE [Concomitant]
     Active Substance: LANSOPRAZOLE
     Indication: Gastrooesophageal reflux disease
     Dosage: 15 MG, DAILY
  5. ATORVASTATIN [Concomitant]
     Active Substance: ATORVASTATIN
     Indication: Blood cholesterol decreased
     Dosage: 40 MG, DAILY (AT NIGHT)
  6. CLOPIDOGREL [Concomitant]
     Active Substance: CLOPIDOGREL BISULFATE
     Indication: Antiplatelet therapy
     Dosage: 75 MG, DAILY
  7. DDAVP [Concomitant]
     Active Substance: DESMOPRESSIN ACETATE
     Indication: Diabetes insipidus
     Dosage: 0.1 MG, ALTERNATE DAY (1/4 TAB)

REACTIONS (2)
  - Drug dose omission by device [Unknown]
  - Device material issue [Unknown]

NARRATIVE: CASE EVENT DATE: 20250101
